FAERS Safety Report 22601083 (Version 1)
Quarter: 2023Q2

REPORT INFORMATION
  Report Type: Spontaneous
  Country: US (occurrence: US)
  Receive Date: 20230614
  Receipt Date: 20230614
  Transmission Date: 20230721
  Serious: No
  Sender: FDA-Public Use
  Company Number: US-RIGEL PHARMACEUTICALS, INC.-2022FOS000618

PATIENT
  Age: 46 Year
  Sex: Male

DRUGS (2)
  1. TAVALISSE [Suspect]
     Active Substance: FOSTAMATINIB
     Indication: Autoimmune haemolytic anaemia
     Dosage: 100 MG, BID
     Route: 048
     Dates: start: 20220728
  2. TAVALISSE [Suspect]
     Active Substance: FOSTAMATINIB
     Indication: Monoclonal gammopathy
     Dosage: UNK
     Dates: start: 2019

REACTIONS (2)
  - Full blood count [Unknown]
  - Off label use [Unknown]

NARRATIVE: CASE EVENT DATE: 20220812
